FAERS Safety Report 6568416-5 (Version None)
Quarter: 2010Q1

REPORT INFORMATION
  Report Type: 
  Country: None (occurrence: None)
  Receive Date: 20100203
  Receipt Date: 20100129
  Transmission Date: 20100710
  Serious: Yes (Death, Hospitalization)
  Sender: FDA-Public Use
  Company Number: FR-CELGENEUS-056-50794-09120805

PATIENT
  Sex: Male
  Weight: 79 kg

DRUGS (5)
  1. VIDAZA [Suspect]
     Route: 058
     Dates: start: 20091026
  2. VIDAZA [Suspect]
     Route: 058
     Dates: end: 20091209
  3. EXJADE [Concomitant]
     Indication: IRON OVERLOAD
     Route: 048
     Dates: start: 20090506, end: 20091201
  4. NEO RECORMON [Concomitant]
     Indication: DRUG USE FOR UNKNOWN INDICATION
     Route: 065
  5. RED BLOOD CELLS [Concomitant]
     Indication: DRUG USE FOR UNKNOWN INDICATION
     Route: 051

REACTIONS (3)
  - DIARRHOEA [None]
  - GENERAL PHYSICAL HEALTH DETERIORATION [None]
  - SEPTIC SHOCK [None]
